FAERS Safety Report 8716305 (Version 8)
Quarter: 2018Q3

REPORT INFORMATION
  Report Type: Spontaneous
  Country: US (occurrence: US)
  Receive Date: 20120810
  Receipt Date: 20180913
  Transmission Date: 20181010
  Serious: Yes (Congenital Anomaly, Other)
  Sender: FDA-Public Use
  Company Number: US-009507513-1208USA003764

PATIENT
  Age: 1 Day
  Sex: Male
  Weight: 2.62 kg

DRUGS (2)
  1. ISENTRESS [Suspect]
     Active Substance: RALTEGRAVIR POTASSIUM
     Dosage: UNK
     Route: 064
  2. COMBIVIR [Suspect]
     Active Substance: LAMIVUDINE\ZIDOVUDINE
     Dosage: UNK
     Route: 064

REACTIONS (7)
  - Nose deformity [Recovered/Resolved]
  - Congenital musculoskeletal anomaly [Not Recovered/Not Resolved]
  - Foetal exposure during pregnancy [Recovered/Resolved]
  - Microstomia [Not Recovered/Not Resolved]
  - Synostosis [Not Recovered/Not Resolved]
  - Low set ears [Recovered/Resolved]
  - Facial asymmetry [Not Recovered/Not Resolved]
